FAERS Safety Report 7984473-3 (Version None)
Quarter: 2011Q4

REPORT INFORMATION
  Report Type: 
  Country: None (occurrence: None)
  Receive Date: 20111216
  Receipt Date: 20111209
  Transmission Date: 20120403
  Serious: Yes (Hospitalization)
  Sender: FDA-Public Use
  Company Number: CH-UCBSA-034390

PATIENT
  Age: 73 Year
  Sex: Male
  Weight: 86 kg

DRUGS (17)
  1. MADOPAR DR [Concomitant]
     Dates: start: 20101101, end: 20110729
  2. MADOPAR DR [Concomitant]
     Dates: start: 20110730
  3. METO ZEROC [Concomitant]
     Indication: HYPERTENSION
     Dates: end: 20110629
  4. CLAROPRAM [Concomitant]
     Indication: DEPRESSION
  5. NEUPRO [Suspect]
     Indication: PARKINSON'S DISEASE
     Dates: start: 20100420, end: 20100427
  6. MADOPAR DR [Concomitant]
     Indication: PARKINSON'S DISEASE
     Dates: start: 20050929, end: 20051006
  7. NIMOTOP [Concomitant]
     Dates: end: 20110518
  8. NEUPRO [Suspect]
     Dates: start: 20100804
  9. MADOPAR DR [Concomitant]
     Dosage: 250 MG, 2 1/2 TBL
     Dates: start: 20051007, end: 20051014
  10. LORAZEPAM [Concomitant]
     Indication: ANXIETY
     Dosage: 1 MG, IF REQUIRED
  11. MADOPAR LIQUID [Concomitant]
     Indication: PARKINSON'S DISEASE
     Dates: start: 20050905
  12. NEUPRO [Suspect]
     Dates: start: 20100428, end: 20100803
  13. TASMAR [Concomitant]
     Indication: PARKINSON'S DISEASE
     Dates: start: 20110228
  14. NIMOTOP [Concomitant]
     Indication: HYPERTENSION
     Dates: start: 20110519
  15. CETRIN [Concomitant]
     Indication: HYPERSENSITIVITY
  16. MADOPAR DR [Concomitant]
     Dates: start: 20051015, end: 20090424
  17. MADOPAR DR [Concomitant]
     Dates: start: 20090425, end: 20101001

REACTIONS (2)
  - DIARRHOEA [None]
  - COELIAC DISEASE [None]
